FAERS Safety Report 6447970-8 (Version None)
Quarter: 2009Q4

REPORT INFORMATION
  Report Type: 
  Country: None (occurrence: None)
  Receive Date: 20091120
  Receipt Date: 20091111
  Transmission Date: 20100525
  Serious: Yes (Hospitalization)
  Sender: FDA-Public Use
  Company Number: US-JNJFOC-20091102833

PATIENT
  Sex: Female

DRUGS (6)
  1. REMICADE [Suspect]
     Dosage: DOSE UNSPECIFIED
     Route: 042
  2. REMICADE [Suspect]
     Indication: COLITIS ULCERATIVE
     Dosage: DOSE UNSPECIFIED
     Route: 042
  3. PREDNISONE [Concomitant]
     Indication: COLITIS ULCERATIVE
  4. METHOTREXATE [Concomitant]
  5. VANCOMYCIN [Concomitant]
     Route: 042
  6. IMURAN [Concomitant]
     Indication: COLITIS ULCERATIVE

REACTIONS (1)
  - MENINGITIS LISTERIA [None]
